FAERS Safety Report 15193017 (Version 1)
Quarter: 2018Q3

REPORT INFORMATION
  Report Type: Spontaneous
  Country: US (occurrence: US)
  Receive Date: 20180725
  Receipt Date: 20180725
  Transmission Date: 20181010
  Serious: Yes (Other)
  Sender: FDA-Public Use
  Company Number: US-ROCHE-2159505

PATIENT
  Sex: Male

DRUGS (1)
  1. XOLAIR [Suspect]
     Active Substance: OMALIZUMAB
     Indication: PRODUCT USED FOR UNKNOWN INDICATION
     Dosage: NO CHANGE?SUBCUTANEOUS ? BENEATH THE SKIN, USUALLY VIA INJECTION
     Route: 058
     Dates: start: 20180501

REACTIONS (1)
  - Anaphylactic reaction [Recovered/Resolved]
